FAERS Safety Report 5691849-6 (Version None)
Quarter: 2008Q2

REPORT INFORMATION
  Report Type: 
  Country: None (occurrence: None)
  Receive Date: 20080401
  Receipt Date: 20080401
  Transmission Date: 20081010
  Serious: Yes (Hospitalization)
  Sender: FDA-Public Use
  Company Number: None

PATIENT
  Age: 42 Year
  Sex: Male
  Weight: 99.7913 kg

DRUGS (7)
  1. PROCHLORPERAZINE TAB [Suspect]
     Indication: NAUSEA
     Dosage: 10MG 1 PO
     Route: 048
     Dates: start: 20080330, end: 20080330
  2. PROCHLORPERAZINE TAB [Suspect]
     Indication: VERTIGO
     Dosage: 10MG 1 PO
     Route: 048
     Dates: start: 20080330, end: 20080330
  3. PROCHLORPERAZINE TAB [Suspect]
     Indication: VOMITING
     Dosage: 10MG 1 PO
     Route: 048
     Dates: start: 20080330, end: 20080330
  4. CELEBREX [Suspect]
     Indication: BACK PAIN
     Dosage: 200MG 1 PO
     Route: 048
     Dates: start: 20080327, end: 20080330
  5. CELEBREX [Suspect]
     Indication: HEADACHE
     Dosage: 200MG 1 PO
     Route: 048
     Dates: start: 20080327, end: 20080330
  6. CELEBREX [Suspect]
     Indication: NECK PAIN
     Dosage: 200MG 1 PO
     Route: 048
     Dates: start: 20080327, end: 20080330
  7. CELEBREX [Suspect]
     Indication: ROAD TRAFFIC ACCIDENT
     Dosage: 200MG 1 PO
     Route: 048
     Dates: start: 20080327, end: 20080330

REACTIONS (5)
  - FEELING ABNORMAL [None]
  - HEART RATE INCREASED [None]
  - HYPERTENSION [None]
  - PALPITATIONS [None]
  - TREMOR [None]
